FAERS Safety Report 20875182 (Version 4)
Quarter: 2022Q2

REPORT INFORMATION
  Report Type: Spontaneous
  Country: US (occurrence: US)
  Receive Date: 20220526
  Receipt Date: 20220610
  Transmission Date: 20220721
  Serious: Yes (Hospitalization)
  Sender: FDA-Public Use
  Company Number: US-UNITED THERAPEUTICS-UNT-2022-009371

PATIENT
  Age: 80 Year
  Sex: Female
  Weight: 45.805 kg

DRUGS (5)
  1. TYVASO [Suspect]
     Active Substance: TREPROSTINIL
     Indication: Pulmonary arterial hypertension
     Dosage: UNK
     Dates: start: 20220314
  2. TYVASO [Suspect]
     Active Substance: TREPROSTINIL
     Dosage: 18-72 ?G, QID
  3. TYVASO [Suspect]
     Active Substance: TREPROSTINIL
     Dosage: UNK
  4. TYVASO [Suspect]
     Active Substance: TREPROSTINIL
     Dosage: 60 ?G (PER TREATMENT)
     Dates: end: 202205
  5. ESBRIET [Concomitant]
     Active Substance: PIRFENIDONE
     Indication: Product used for unknown indication
     Dosage: UNK
     Route: 065

REACTIONS (8)
  - Exposure to SARS-CoV-2 [Recovered/Resolved]
  - Respiration abnormal [Unknown]
  - Asthenia [Unknown]
  - Back injury [Unknown]
  - Hyperventilation [Unknown]
  - Cough [Unknown]
  - Mobility decreased [Unknown]
  - Wrong technique in product usage process [Unknown]

NARRATIVE: CASE EVENT DATE: 20220523
